FAERS Safety Report 4840446-0 (Version None)
Quarter: 2005Q4

REPORT INFORMATION
  Report Type: 
  Country: None (occurrence: None)
  Receive Date: 20051128
  Receipt Date: 20051128
  Transmission Date: 20060501
  Serious: Yes (Other)
  Sender: FDA-Public Use
  Company Number: None

PATIENT
  Age: 56 Year
  Sex: Female
  Weight: 59.8748 kg

DRUGS (1)
  1. ACTONEL [Suspect]
     Indication: OSTEOPOROSIS
     Dosage: 35 MG WEEKLY PO   ONE DOSE ONLY
     Route: 048
     Dates: start: 20041116, end: 20041116

REACTIONS (4)
  - ABDOMINAL PAIN UPPER [None]
  - CHEST PAIN [None]
  - GASTRIC ULCER [None]
  - INFLAMMATION [None]
